FAERS Safety Report 17938881 (Version 1)
Quarter: 2020Q2

REPORT INFORMATION
  Report Type: Spontaneous
  Country: DE (occurrence: DE)
  Receive Date: 20200625
  Receipt Date: 20200625
  Transmission Date: 20200714
  Serious: Yes (Hospitalization)
  Sender: FDA-Public Use
  Company Number: DE-TEVA-2020-DE-1790578

PATIENT
  Age: 66 Year
  Sex: Female

DRUGS (8)
  1. LEVEMIR [Concomitant]
     Active Substance: INSULIN DETEMIR
     Dosage: NK MG, 0-0-18-0
     Route: 058
  2. METOPROLOL. [Suspect]
     Active Substance: METOPROLOL
     Dosage: 1 DOSAGE FORMS DAILY; 47.5 MG, 0.5-0-0.5-0
     Route: 048
  3. BICANORM [Concomitant]
     Active Substance: SODIUM BICARBONATE
     Dosage: 1 DOSAGE FORMS DAILY; NK MG, 1-0-0-0
     Route: 048
  4. MAGNESIUMOXID [Concomitant]
     Dosage: 300 MG / 2 DAYS, 1-0-0-0
     Route: 048
  5. PHOSPHONORM 300MG [Concomitant]
     Dosage: 900 MILLIGRAM DAILY; 300 MG, 1-1-1-0
     Route: 048
  6. ACETYLSALICYLS?URE [Concomitant]
     Active Substance: ASPIRIN
     Dosage: 100 MILLIGRAM DAILY; 100 MG, 1-0-0-0
     Route: 048
  7. LEVOTHYROXIN-NATRIUM [Concomitant]
     Active Substance: LEVOTHYROXINE SODIUM
     Dosage: 100 MICROGRAM DAILY; 100 UG, 1-0-0-0
     Route: 048
  8. CITALOPRAM [Concomitant]
     Active Substance: CITALOPRAM HYDROBROMIDE
     Dosage: 20 MILLIGRAM DAILY; 20 MG, 1-0-0-0
     Route: 048

REACTIONS (4)
  - Systemic infection [Unknown]
  - General physical health deterioration [Unknown]
  - Cellulitis [Unknown]
  - Gangrene [Unknown]
